FAERS Safety Report 23263318 (Version 1)
Quarter: 2023Q4

REPORT INFORMATION
  Report Type: Spontaneous
  Country: US (occurrence: None)
  Receive Date: 20231204
  Receipt Date: 20231204
  Transmission Date: 20240109
  Serious: Yes (Disabling)
  Sender: FDA-Public Use
  Company Number: None

PATIENT
  Age: 46 Year
  Sex: Female
  Weight: 52.2 kg

DRUGS (1)
  1. CIPROFLOXACIN [Suspect]
     Active Substance: CIPROFLOXACIN
     Indication: Urinary tract infection
     Dates: start: 20180530, end: 20180603

REACTIONS (13)
  - Pain [None]
  - Pain in extremity [None]
  - Gait disturbance [None]
  - Skin burning sensation [None]
  - Palpitations [None]
  - Suicidal ideation [None]
  - Tendon disorder [None]
  - Tendon pain [None]
  - Neuralgia [None]
  - Peripheral sensorimotor neuropathy [None]
  - Hypophagia [None]
  - Insomnia [None]
  - Quality of life decreased [None]

NARRATIVE: CASE EVENT DATE: 20180601
